FAERS Safety Report 6271701-8 (Version None)
Quarter: 2009Q3

REPORT INFORMATION
  Report Type: 
  Country: None (occurrence: None)
  Receive Date: 20090716
  Receipt Date: 20090716
  Transmission Date: 20100115
  Serious: Yes (Other)
  Sender: FDA-Public Use
  Company Number: None

PATIENT
  Age: 19 Year
  Sex: Female
  Weight: 53.5244 kg

DRUGS (1)
  1. LICEMD COMBE INCORPORATED [Suspect]
     Dosage: HEAVY LAYER OF SKIN FACE ONE NIGHT
     Dates: start: 20090401, end: 20090402

REACTIONS (4)
  - ACNE [None]
  - NERVE INJURY [None]
  - PRURITUS [None]
  - SENSORY LOSS [None]
